FAERS Safety Report 9487348 (Version 1)
Quarter: 2013Q3

REPORT INFORMATION
  Report Type: Spontaneous
  Country: FR (occurrence: FR)
  Receive Date: 20130829
  Receipt Date: 20130829
  Transmission Date: 20140515
  Serious: Yes (Life-Threatening, Hospitalization, Other)
  Sender: FDA-Public Use
  Company Number: FR-ABBOTT-13P-056-1139972-00

PATIENT
  Age: 27 Year
  Sex: 0

DRUGS (7)
  1. HUMIRA [Suspect]
     Indication: CROHN^S DISEASE
     Route: 058
     Dates: start: 20130430, end: 20130430
  2. IMUREL [Suspect]
     Indication: CROHN^S DISEASE
     Route: 048
     Dates: start: 20120502, end: 20130517
  3. REMICADE [Suspect]
     Indication: CROHN^S DISEASE
     Route: 042
     Dates: start: 20120514, end: 20130405
  4. CORTANCYL [Suspect]
     Indication: CROHN^S DISEASE
     Route: 048
     Dates: start: 201205, end: 20130517
  5. OXYNORM [Concomitant]
     Indication: PAIN
  6. CACIT VITAMINE D3 [Concomitant]
     Indication: PRODUCT USED FOR UNKNOWN INDICATION
     Dosage: 1000MG/880 UI
     Route: 048
  7. FERINJECT [Concomitant]
     Indication: PRODUCT USED FOR UNKNOWN INDICATION
     Route: 058
     Dates: start: 20130502

REACTIONS (21)
  - C-reactive protein increased [Recovered/Resolved]
  - Nocardiosis [Recovered/Resolved]
  - Dyspnoea [Recovered/Resolved]
  - Septic shock [Recovered/Resolved]
  - Lung infection [Recovered/Resolved]
  - Pneumocystis jirovecii pneumonia [Recovered/Resolved]
  - Malnutrition [Recovered/Resolved]
  - Cachexia [Recovered/Resolved]
  - Subileus [Unknown]
  - Colon injury [Unknown]
  - Rectal injury [Unknown]
  - Hyponatraemia [Unknown]
  - Hypokalaemia [Unknown]
  - Metabolic acidosis [Unknown]
  - Anaemia [Unknown]
  - Thrombocytopenia [Unknown]
  - Neutropenia [Unknown]
  - Vitamin C deficiency [Recovered/Resolved]
  - Vitamin B complex deficiency [Recovered/Resolved]
  - Iron deficiency [Recovered/Resolved]
  - Vitamin B12 deficiency [Recovered/Resolved]
